FAERS Safety Report 8351243-6 (Version None)
Quarter: 2012Q2

REPORT INFORMATION
  Report Type: 
  Country: None (occurrence: None)
  Receive Date: 20120510
  Receipt Date: 20120504
  Transmission Date: 20120825
  Serious: Yes (Other)
  Sender: FDA-Public Use
  Company Number: US-PFIZER INC-2012098523

PATIENT
  Sex: Female
  Weight: 54.422 kg

DRUGS (9)
  1. LIPITOR [Suspect]
     Indication: BLOOD TRIGLYCERIDES INCREASED
     Dosage: 10 MG, DAILY
     Dates: start: 20120301, end: 20120501
  2. CRESTOR [Suspect]
     Dosage: UNK
  3. PAXIL [Concomitant]
     Dosage: UNK
  4. PREVACID [Concomitant]
     Indication: GASTRIC DISORDER
     Dosage: UNK, DAILY
  5. LASIX [Concomitant]
     Indication: FLUID RETENTION
     Dosage: 40 MG, DAILY
  6. SYNTHROID [Concomitant]
     Dosage: 112 UG, DAILY
  7. TOPROL-XL [Suspect]
     Dosage: UNK
  8. NORVASC [Concomitant]
     Indication: BLOOD PRESSURE ABNORMAL
     Dosage: 5 MG, DAILY
  9. DIGOXIN [Concomitant]
     Indication: CARDIAC DISORDER
     Dosage: 250 UG, DAILY

REACTIONS (6)
  - SPINAL PAIN [None]
  - JOINT INJURY [None]
  - DRUG INTOLERANCE [None]
  - MOBILITY DECREASED [None]
  - ABDOMINAL PAIN UPPER [None]
  - BACK PAIN [None]
